FAERS Safety Report 25213759 (Version 1)
Quarter: 2025Q2

REPORT INFORMATION
  Report Type: Spontaneous
  Country: BR (occurrence: BR)
  Receive Date: 20250418
  Receipt Date: 20250418
  Transmission Date: 20250716
  Serious: Yes (Other)
  Sender: PFIZER
  Company Number: BR-PFIZER INC-202500077250

PATIENT
  Age: 43 Year
  Sex: Female

DRUGS (3)
  1. DESVENLAFAXINE SUCCINATE [Suspect]
     Active Substance: DESVENLAFAXINE SUCCINATE
     Indication: Depression
  2. FISH OIL [Concomitant]
     Active Substance: FISH OIL
  3. MINOXIDIL [Concomitant]
     Active Substance: MINOXIDIL

REACTIONS (9)
  - Lipoedema [Unknown]
  - Somnolence [Unknown]
  - Anxiety [Unknown]
  - Nervousness [Unknown]
  - Irritability [Unknown]
  - Fatigue [Unknown]
  - Muscular weakness [Unknown]
  - Asthenia [Unknown]
  - Hyperhidrosis [Unknown]
